FAERS Safety Report 19449166 (Version 1)
Quarter: 2021Q2

REPORT INFORMATION
  Report Type: Spontaneous
  Country: DE (occurrence: DE)
  Receive Date: 20210622
  Receipt Date: 20210622
  Transmission Date: 20210717
  Serious: Yes (Other)
  Sender: FDA-Public Use
  Company Number: DE-BAYER-2021-157663

PATIENT
  Age: 24 Year
  Sex: Female
  Weight: 60 kg

DRUGS (3)
  1. CIPROBAY [CIPROFLOXACIN BETAIN] [Suspect]
     Active Substance: CIPROFLOXACIN
  2. PREDNISOLONE. [Interacting]
     Active Substance: PREDNISOLONE
     Indication: PRECURSOR T-LYMPHOBLASTIC LYMPHOMA/LEUKAEMIA
     Dosage: 3X20 MG / M? P.O. (3 INTAKES) DAY 1?14
     Route: 048
     Dates: start: 2015
  3. PEG/L?ASPARAGINASE [Interacting]
     Active Substance: PEGASPARGASE

REACTIONS (4)
  - Mobility decreased [Recovered/Resolved]
  - Pain [Unknown]
  - Arthralgia [Recovered/Resolved]
  - Osteonecrosis [Recovered/Resolved with Sequelae]

NARRATIVE: CASE EVENT DATE: 2015
